FAERS Safety Report 22627161 (Version 1)
Quarter: 2023Q2

REPORT INFORMATION
  Report Type: Spontaneous
  Country: NL (occurrence: NL)
  Receive Date: 20230622
  Receipt Date: 20230622
  Transmission Date: 20230722
  Serious: Yes (Life-Threatening, Hospitalization)
  Sender: FDA-Public Use
  Company Number: NL-LRB-00886214

PATIENT
  Sex: Male
  Weight: 87 kg

DRUGS (1)
  1. DOCETAXEL [Suspect]
     Active Substance: DOCETAXEL
     Indication: Prostate cancer
     Dosage: 160 MILLIGRAM, ONCE A DAY (1X PER DAG 160 MG IN NACL 0.9%)
     Route: 065
     Dates: start: 20230530, end: 20230608

REACTIONS (1)
  - Hyponatraemia [Not Recovered/Not Resolved]
